FAERS Safety Report 8929267 (Version 1)
Quarter: 2012Q4

REPORT INFORMATION
  Report Type: Spontaneous
  Country: US (occurrence: None)
  Receive Date: 20121126
  Receipt Date: 20121126
  Transmission Date: 20130627
  Serious: No
  Sender: FDA-Public Use
  Company Number: None

PATIENT
  Sex: Female
  Weight: 55.34 kg

DRUGS (1)
  1. OSMOPREP [Suspect]
     Indication: COLONOSCOPY
     Dosage: 4 tablets 15 minutes apart 8 times
total 32 tablets
     Dates: start: 20121024

REACTIONS (5)
  - Abdominal pain upper [None]
  - Abdominal distension [None]
  - Nasopharyngitis [None]
  - Nausea [None]
  - Therapeutic response decreased [None]
